FAERS Safety Report 15919696 (Version 2)
Quarter: 2019Q1

REPORT INFORMATION
  Report Type: Spontaneous
  Country: US (occurrence: US)
  Receive Date: 20190205
  Receipt Date: 20190304
  Transmission Date: 20190417
  Serious: Yes (Hospitalization, Other)
  Sender: FDA-Public Use
  Company Number: US-OTSUKA-2018_025192

PATIENT
  Sex: Female

DRUGS (11)
  1. EFFEXOR [Concomitant]
     Active Substance: VENLAFAXINE HYDROCHLORIDE
     Indication: PRODUCT USED FOR UNKNOWN INDICATION
     Dosage: UNK
     Route: 065
  2. CRESTOR [Concomitant]
     Active Substance: ROSUVASTATIN CALCIUM
     Indication: PRODUCT USED FOR UNKNOWN INDICATION
     Dosage: UNK
     Route: 065
  3. NEXIUM [Concomitant]
     Active Substance: ESOMEPRAZOLE MAGNESIUM
     Indication: PRODUCT USED FOR UNKNOWN INDICATION
     Dosage: UNK
     Route: 065
  4. CASANTHRANOL [Concomitant]
     Active Substance: CASANTHRANOL
     Indication: PRODUCT USED FOR UNKNOWN INDICATION
     Dosage: UNK
     Route: 065
  5. ABILIFY [Suspect]
     Active Substance: ARIPIPRAZOLE
     Indication: MAJOR DEPRESSION
     Dosage: 2.5 MG, UNK
     Route: 065
     Dates: start: 20110627
  6. ABILIFY [Suspect]
     Active Substance: ARIPIPRAZOLE
     Indication: ADJUVANT THERAPY
     Dosage: 5 MG, UNK
     Route: 065
     Dates: end: 20180304
  7. ASTELIN [Concomitant]
     Active Substance: AZELASTINE HYDROCHLORIDE
     Indication: PRODUCT USED FOR UNKNOWN INDICATION
     Dosage: UNK
     Route: 065
  8. PRINIVIL [Concomitant]
     Active Substance: LISINOPRIL
     Indication: PRODUCT USED FOR UNKNOWN INDICATION
     Dosage: UNK
     Route: 065
  9. DITROPAN [Concomitant]
     Active Substance: OXYBUTYNIN CHLORIDE
     Indication: PRODUCT USED FOR UNKNOWN INDICATION
     Dosage: UNK
     Route: 065
  10. XANAX [Concomitant]
     Active Substance: ALPRAZOLAM
     Indication: PRODUCT USED FOR UNKNOWN INDICATION
     Dosage: UNK
     Route: 065
  11. BETAPACE [Concomitant]
     Active Substance: SOTALOL HYDROCHLORIDE
     Indication: PRODUCT USED FOR UNKNOWN INDICATION
     Dosage: UNK
     Route: 065

REACTIONS (20)
  - Suicide attempt [Recovered/Resolved]
  - Joint swelling [Unknown]
  - Lymphocyte count decreased [Unknown]
  - Palpitations [Unknown]
  - Obsessive-compulsive disorder [Unknown]
  - Glomerular filtration rate decreased [Unknown]
  - Emotional distress [Unknown]
  - Gambling disorder [Unknown]
  - Economic problem [Unknown]
  - Dyspnoea [Unknown]
  - Blood urea increased [Unknown]
  - Blood cholesterol increased [Unknown]
  - Haemoglobin decreased [Unknown]
  - Blood creatinine increased [Unknown]
  - Mental disorder [Unknown]
  - Injury [Unknown]
  - Neuropsychiatric symptoms [Unknown]
  - Blood triglycerides increased [Unknown]
  - Suicidal ideation [Unknown]
  - White blood cell count decreased [Unknown]
